FAERS Safety Report 5138745-0 (Version None)
Quarter: 2006Q4

REPORT INFORMATION
  Report Type: 
  Country: None (occurrence: None)
  Receive Date: 20061030
  Receipt Date: 20061019
  Transmission Date: 20070319
  Serious: Yes (Hospitalization)
  Sender: FDA-Public Use
  Company Number: US-ROCHE-468253

PATIENT
  Age: 18 Year
  Sex: Female

DRUGS (1)
  1. FUZEON [Suspect]
     Route: 058
     Dates: start: 20050615

REACTIONS (2)
  - LEUKOENCEPHALOMYELITIS [None]
  - MENINGITIS VIRAL [None]
